FAERS Safety Report 12427915 (Version 1)
Quarter: 2016Q2

REPORT INFORMATION
  Report Type: Spontaneous
  Country: US (occurrence: US)
  Receive Date: 20160602
  Receipt Date: 20160602
  Transmission Date: 20160815
  Serious: No
  Sender: FDA-Public Use
  Company Number: US-SUN PHARMACEUTICAL INDUSTRIES LTD-2015US-101834

PATIENT
  Age: 60 Year
  Sex: Female
  Weight: 58.96 kg

DRUGS (3)
  1. RANITIDINE. [Suspect]
     Active Substance: RANITIDINE
     Indication: DYSPEPSIA
  2. RANITIDINE. [Suspect]
     Active Substance: RANITIDINE
     Indication: PRODUCT USED FOR UNKNOWN INDICATION
     Dosage: 1 DF, BID
     Route: 065
  3. RANITIDINE. [Suspect]
     Active Substance: RANITIDINE
     Indication: OROPHARYNGEAL PAIN
     Dosage: 2 DF,BID
     Route: 065
     Dates: start: 20150401, end: 20150809

REACTIONS (2)
  - Therapeutic response decreased [Unknown]
  - Drug administration error [Unknown]

NARRATIVE: CASE EVENT DATE: 201504
